FAERS Safety Report 6634274-3 (Version None)
Quarter: 2010Q1

REPORT INFORMATION
  Report Type: 
  Country: None (occurrence: None)
  Receive Date: 20100315
  Receipt Date: 20100310
  Transmission Date: 20100710
  Serious: Yes (Death, Other)
  Sender: FDA-Public Use
  Company Number: PHEH2010US01907

PATIENT
  Sex: Male
  Weight: 56.236 kg

DRUGS (17)
  1. EXJADE [Suspect]
     Indication: IRON OVERLOAD
     Dosage: 250 MG, QD
     Route: 048
     Dates: start: 20091117, end: 20100110
  2. PROGRAF [Concomitant]
     Dosage: 0.5 MG, QD
     Route: 048
  3. PREDNISONE [Concomitant]
     Dosage: 30 MG, QD
     Route: 048
  4. CELLCEPT [Concomitant]
     Dosage: 1 G, BID
     Route: 048
  5. VALTREX [Concomitant]
     Dosage: 500 MG, QD
     Route: 048
  6. BACTRIM DS [Concomitant]
     Dosage: 1 TAB BID ON MON AND THURS
     Route: 048
  7. AMBISOME [Concomitant]
     Dosage: ONCE A WEEK ON TUES
  8. CIPROFLOXACIN [Concomitant]
     Dosage: 500 MG, BID
     Route: 048
  9. CALCIUM WITH VITAMIN D [Concomitant]
     Dosage: 1 TAB, QD
     Route: 048
  10. CLOTRIMAZOLE [Concomitant]
     Dosage: 10 MG, 5 TIMES PER DAY
  11. COMBIVENT                               /GFR/ [Concomitant]
     Dosage: UNK, PRN
  12. NEXIUM [Concomitant]
     Dosage: 40 MG, BID
     Route: 048
  13. FOLIC ACID [Concomitant]
     Dosage: 1 MG, QD
     Route: 048
  14. FLAXSEED OIL [Concomitant]
     Dosage: 2 CAPS, BID
     Route: 048
  15. NEURONTIN [Concomitant]
     Dosage: 300 MG, BID
     Route: 048
  16. LANTUS [Concomitant]
     Dosage: 12 UNITS AT BEDTIME WITH SLIDING SCALE
  17. METOPROLOL [Concomitant]
     Dosage: 25 MG, BID
     Route: 048

REACTIONS (14)
  - ALANINE AMINOTRANSFERASE INCREASED [None]
  - ASPARTATE AMINOTRANSFERASE INCREASED [None]
  - BLOOD ALKALINE PHOSPHATASE INCREASED [None]
  - BLOOD PH DECREASED [None]
  - BUNDLE BRANCH BLOCK LEFT [None]
  - COMPLICATIONS OF BONE MARROW TRANSPLANT [None]
  - GRAFT VERSUS HOST DISEASE [None]
  - INFECTION [None]
  - JOINT SWELLING [None]
  - MYELOID LEUKAEMIA [None]
  - PCO2 INCREASED [None]
  - PRODUCTIVE COUGH [None]
  - SPUTUM ABNORMAL [None]
  - STEM CELL TRANSPLANT [None]
